FAERS Safety Report 25817415 (Version 1)
Quarter: 2025Q3

REPORT INFORMATION
  Report Type: Spontaneous
  Country: EU (occurrence: EU)
  Receive Date: 20250918
  Receipt Date: 20250918
  Transmission Date: 20251021
  Serious: Yes (Other)
  Sender: AUROBINDO
  Company Number: EU-AFSSAPS-AN2025001130

PATIENT
  Age: 74 Year
  Sex: Female

DRUGS (2)
  1. SIMVASTATIN [Suspect]
     Active Substance: SIMVASTATIN
     Indication: Dyslipidaemia
     Dosage: 5 MILLIGRAM, ONCE A DAY
     Route: 048
     Dates: end: 202504
  2. NEBIVOLOL [Concomitant]
     Active Substance: NEBIVOLOL
     Indication: Product used for unknown indication
     Route: 048

REACTIONS (1)
  - Uterine haemorrhage [Recovered/Resolved]

NARRATIVE: CASE EVENT DATE: 20250401
